FAERS Safety Report 10612849 (Version 1)
Quarter: 2014Q4

REPORT INFORMATION
  Report Type: Spontaneous
  Country: SE (occurrence: SE)
  Receive Date: 20141127
  Receipt Date: 20141127
  Transmission Date: 20150529
  Serious: Yes (Hospitalization)
  Sender: FDA-Public Use
  Company Number: SE-ASTRAZENECA-2014SE88302

PATIENT
  Age: 47 Year
  Sex: Female

DRUGS (16)
  1. PROVERA [Suspect]
     Active Substance: MEDROXYPROGESTERONE ACETATE
     Route: 048
     Dates: start: 20131016, end: 20131016
  2. PROMETHAZINE [Suspect]
     Active Substance: PROMETHAZINE\PROMETHAZINE HYDROCHLORIDE
     Route: 048
  3. CIPRALEX [Suspect]
     Active Substance: ESCITALOPRAM OXALATE
     Route: 048
     Dates: start: 20131016, end: 20131016
  4. PROPAVAN [Suspect]
     Active Substance: PROPIOMAZINE
     Route: 048
  5. FLUANXOL [Suspect]
     Active Substance: FLUPENTIXOL
     Route: 048
  6. PROMETHAZINE [Suspect]
     Active Substance: PROMETHAZINE\PROMETHAZINE HYDROCHLORIDE
     Route: 048
     Dates: start: 20131016, end: 20131016
  7. CIPRALEX [Suspect]
     Active Substance: ESCITALOPRAM OXALATE
     Route: 048
  8. SEROQUEL [Suspect]
     Active Substance: QUETIAPINE FUMARATE
     Route: 048
  9. PROVERA [Suspect]
     Active Substance: MEDROXYPROGESTERONE ACETATE
     Route: 048
  10. FLUANXOL [Suspect]
     Active Substance: FLUPENTIXOL
     Route: 048
     Dates: start: 20131016, end: 20131016
  11. ERGENYL [Suspect]
     Active Substance: VALPROIC ACID
     Route: 048
  12. PROPAVAN [Suspect]
     Active Substance: PROPIOMAZINE
     Route: 048
     Dates: start: 20131016, end: 20131016
  13. ZOPICLONE [Suspect]
     Active Substance: ZOPICLONE
     Route: 048
     Dates: start: 20131016, end: 20131016
  14. ZOPICLONE [Suspect]
     Active Substance: ZOPICLONE
     Route: 048
  15. ERGENYL [Suspect]
     Active Substance: VALPROIC ACID
     Route: 048
     Dates: start: 20131016, end: 20131016
  16. SEROQUEL [Suspect]
     Active Substance: QUETIAPINE FUMARATE
     Route: 048
     Dates: start: 20131016, end: 20131016

REACTIONS (2)
  - Toxicity to various agents [Recovered/Resolved]
  - Suicidal ideation [Recovered/Resolved]

NARRATIVE: CASE EVENT DATE: 20131016
